FAERS Safety Report 11222070 (Version 3)
Quarter: 2015Q3

REPORT INFORMATION
  Report Type: Report from Study
  Country: US (occurrence: US)
  Receive Date: 20150626
  Receipt Date: 20150715
  Transmission Date: 20151125
  Serious: Yes (Death, Hospitalization)
  Sender: FDA-Public Use
  Company Number: US-ACTELION-A-NJ2015-119602

PATIENT
  Age: 72 Year
  Sex: Female

DRUGS (5)
  1. COUMADIN [Concomitant]
     Active Substance: WARFARIN SODIUM
  2. MACITENTAN [Suspect]
     Active Substance: MACITENTAN
     Indication: PULMONARY HYPERTENSION
     Dosage: 10 MG, QD
     Route: 048
  3. ADCIRCA [Concomitant]
     Active Substance: TADALAFIL
  4. REMODULIN [Concomitant]
     Active Substance: TREPROSTINIL
  5. REVATIO [Concomitant]
     Active Substance: SILDENAFIL CITRATE

REACTIONS (9)
  - Renal failure [Fatal]
  - Fluid overload [Unknown]
  - Anaemia [Unknown]
  - Cardiac failure congestive [Unknown]
  - Pulmonary arterial hypertension [Unknown]
  - Heart rate irregular [Unknown]
  - Blood pressure fluctuation [Unknown]
  - Dyspnoea [Unknown]
  - Hypoxia [Unknown]

NARRATIVE: CASE EVENT DATE: 20150625
